FAERS Safety Report 25742015 (Version 1)
Quarter: 2025Q3

REPORT INFORMATION
  Report Type: Spontaneous
  Country: US (occurrence: US)
  Receive Date: 20250829
  Receipt Date: 20250829
  Transmission Date: 20251021
  Serious: No
  Sender: MYLAN
  Company Number: US-MYLANLABS-2025M1071835

PATIENT
  Age: 76 Year
  Sex: Female
  Weight: 57.83 kg

DRUGS (3)
  1. LATANOPROST [Suspect]
     Active Substance: LATANOPROST
     Indication: Glaucoma
     Dosage: 1 GTT DROPS, HS (ONE DROP IN BOTH EYES AT BEDTIME)
     Dates: start: 20250815
  2. CARVEDILOL [Concomitant]
     Active Substance: CARVEDILOL
     Indication: Blood pressure abnormal
  3. AMLODIPINE [Concomitant]
     Active Substance: AMLODIPINE BESYLATE
     Indication: Blood pressure abnormal

REACTIONS (3)
  - Eyelid irritation [Unknown]
  - Vision blurred [Not Recovered/Not Resolved]
  - Headache [Unknown]

NARRATIVE: CASE EVENT DATE: 20250801
